FAERS Safety Report 9234567 (Version 2)
Quarter: 2013Q2

REPORT INFORMATION
  Report Type: Spontaneous
  Country: JP (occurrence: JP)
  Receive Date: 20130416
  Receipt Date: 20130614
  Transmission Date: 20140414
  Serious: Yes (Hospitalization)
  Sender: FDA-Public Use
  Company Number: JP-VERTEX PHARMACEUTICALS INC.-2013-004829

PATIENT
  Age: 59 Year
  Sex: Male

DRUGS (11)
  1. TELAVIC [Suspect]
     Indication: CHRONIC HEPATITIS C
     Dosage: 2250 MG, QD
     Route: 048
     Dates: start: 20130208, end: 20130224
  2. TELAVIC [Suspect]
     Dosage: 1500 MG, QD
     Route: 048
     Dates: start: 20130225, end: 20130423
  3. TELAVIC [Suspect]
     Dosage: 750 MG, QD
     Route: 048
     Dates: start: 20130424
  4. REBETOL [Suspect]
     Indication: CHRONIC HEPATITIS C
     Dosage: 1000 MG, QD
     Route: 048
     Dates: start: 20130208, end: 20130423
  5. REBETOL [Suspect]
     Dosage: 600 MG, QD
     Route: 048
     Dates: start: 20130424
  6. PEGINTRON [Concomitant]
     Dosage: 1.5 ?G/KG, QW
     Route: 058
     Dates: start: 20130208
  7. ECARD [Concomitant]
     Dosage: 1 DF, QD
     Route: 048
     Dates: end: 20130307
  8. METHYCOBAL [Concomitant]
     Dosage: 1500 MG, QD
     Route: 048
     Dates: start: 20130209
  9. NEWTOLIDE [Concomitant]
     Dosage: 6.25 MG, QD
     Route: 048
     Dates: start: 20130308
  10. BLOPRESS [Concomitant]
     Dosage: 8 MG, QD
     Route: 048
     Dates: start: 20130308
  11. NORVASC [Concomitant]
     Dosage: 5 MG, QD
     Route: 048

REACTIONS (7)
  - Renal impairment [Not Recovered/Not Resolved]
  - Dysgeusia [Not Recovered/Not Resolved]
  - Tinea pedis [Not Recovered/Not Resolved]
  - Herpes simplex [Recovered/Resolved]
  - Anaemia [Not Recovered/Not Resolved]
  - Drug eruption [Not Recovered/Not Resolved]
  - Hyperuricaemia [Unknown]
